FAERS Safety Report 20612291 (Version 1)
Quarter: 2022Q1

REPORT INFORMATION
  Report Type: Spontaneous
  Country: US (occurrence: None)
  Receive Date: 20220318
  Receipt Date: 20220318
  Transmission Date: 20220423
  Serious: Yes (Other)
  Sender: FDA-Public Use
  Company Number: None

PATIENT

DRUGS (3)
  1. AMLODIPINE [Suspect]
     Active Substance: AMLODIPINE BESYLATE
  2. AMITRIPTYLINE [Suspect]
     Active Substance: AMITRIPTYLINE
  3. ALLOPURINOL [Suspect]
     Active Substance: ALLOPURINOL

REACTIONS (3)
  - Product label confusion [None]
  - Product packaging confusion [None]
  - Circumstance or information capable of leading to medication error [None]
